FAERS Safety Report 12874975 (Version 1)
Quarter: 2016Q4

REPORT INFORMATION
  Report Type: Spontaneous
  Country: FR (occurrence: FR)
  Receive Date: 20161023
  Receipt Date: 20161023
  Transmission Date: 20170207
  Serious: Yes (Life-Threatening)
  Sender: FDA-Public Use
  Company Number: FR-009507513-1610FRA009653

PATIENT
  Age: 80 Year
  Sex: Male

DRUGS (12)
  1. OMEPRAZOLE. [Concomitant]
     Active Substance: OMEPRAZOLE
  2. HEMIGOXINE NATIVELLE [Concomitant]
     Active Substance: DIGOXIN
  3. OXEOL [Concomitant]
     Active Substance: BAMBUTEROL HYDROCHLORIDE
  4. INNOHEP [Suspect]
     Active Substance: TINZAPARIN SODIUM
     Indication: HEART VALVE OPERATION
     Dosage: 0.6 ML, QD
     Route: 058
     Dates: start: 20160908
  5. XELODA [Suspect]
     Active Substance: CAPECITABINE
     Indication: METASTASES TO STOMACH
     Dosage: 750 MG/M2, QD
     Route: 048
     Dates: start: 20160908, end: 20160910
  6. LISINOPRIL. [Concomitant]
     Active Substance: LISINOPRIL
  7. FUROSEMIDE. [Concomitant]
     Active Substance: FUROSEMIDE
  8. INEGY [Concomitant]
     Active Substance: EZETIMIBE\SIMVASTATIN
  9. TEMODAL [Suspect]
     Active Substance: TEMOZOLOMIDE
     Indication: METASTASES TO LIVER
     Dosage: 150 MG/M2, UNK
     Route: 048
     Dates: start: 20160908, end: 20160910
  10. LANTUS [Concomitant]
     Active Substance: INSULIN GLARGINE
  11. ORACILLINE (PENICILLIN V BENZATHINE) [Concomitant]
     Active Substance: PENICILLIN V BENZATHINE
  12. LAROXYL [Concomitant]
     Active Substance: AMITRIPTYLINE

REACTIONS (1)
  - Myocardial infarction [Recovered/Resolved]

NARRATIVE: CASE EVENT DATE: 20160910
